FAERS Safety Report 24435797 (Version 2)
Quarter: 2025Q1

REPORT INFORMATION
  Report Type: Report from Study
  Country: GB (occurrence: GB)
  Receive Date: 20241015
  Receipt Date: 20250306
  Transmission Date: 20250409
  Serious: Yes (Hospitalization)
  Sender: SAMSUNG BIOEPIS
  Company Number: GB-SAMSUNG BIOEPIS-SB-2024-30458

PATIENT
  Age: 27 Year
  Sex: Female

DRUGS (1)
  1. IMRALDI [Suspect]
     Active Substance: ADALIMUMAB
     Indication: Hidradenitis
     Dosage: 40MG/0.8ML;
     Route: 058
     Dates: start: 20240711

REACTIONS (3)
  - Haemoptysis [Unknown]
  - Productive cough [Unknown]
  - Viral infection [Unknown]
